FAERS Safety Report 16676308 (Version 2)
Quarter: 2019Q3

REPORT INFORMATION
  Report Type: Spontaneous
  Country: US (occurrence: US)
  Receive Date: 20190807
  Receipt Date: 20190808
  Transmission Date: 20191004
  Serious: No
  Sender: FDA-Public Use
  Company Number: US-TEVA-2019-US-1085071

PATIENT
  Sex: Male

DRUGS (10)
  1. SERTRALINE [Concomitant]
     Active Substance: SERTRALINE HYDROCHLORIDE
  2. TIZANIDINE. [Concomitant]
     Active Substance: TIZANIDINE
  3. AUSTEDO [Suspect]
     Active Substance: DEUTETRABENAZINE
     Indication: TARDIVE DYSKINESIA
     Dosage: 24 MILLIGRAM DAILY;
     Route: 065
     Dates: start: 201712
  4. AUSTEDO [Suspect]
     Active Substance: DEUTETRABENAZINE
     Dosage: LAST MONTH WAS PRESCRIBED 120 TABLETS
     Route: 065
  5. MVI [Concomitant]
     Active Substance: VITAMINS
  6. OMEPRAZOLE. [Concomitant]
     Active Substance: OMEPRAZOLE
  7. FISH OIL [Concomitant]
     Active Substance: FISH OIL
  8. AJOVY [Concomitant]
     Active Substance: FREMANEZUMAB-VFRM
  9. DEPAKOTE ER [Concomitant]
     Active Substance: DIVALPROEX SODIUM
  10. TEMAZEPAM. [Concomitant]
     Active Substance: TEMAZEPAM

REACTIONS (1)
  - Drug ineffective [Unknown]

NARRATIVE: CASE EVENT DATE: 2018
